FAERS Safety Report 18059557 (Version 2)
Quarter: 2020Q3

REPORT INFORMATION
  Report Type: Spontaneous
  Country: US (occurrence: US)
  Receive Date: 20200723
  Receipt Date: 20200902
  Transmission Date: 20201103
  Serious: No
  Sender: FDA-Public Use
  Company Number: US-ASTRAZENECA-2020SE90928

PATIENT
  Age: 823 Month
  Sex: Female
  Weight: 82.6 kg

DRUGS (3)
  1. BYDUREON BCISE [Suspect]
     Active Substance: EXENATIDE
     Indication: TYPE 2 DIABETES MELLITUS
     Route: 058
     Dates: start: 20200121, end: 202004
  2. LEVEMIR [Concomitant]
     Active Substance: INSULIN DETEMIR
     Dosage: 58 UNITS
  3. NOVOLOG [Concomitant]
     Active Substance: INSULIN ASPART
     Dosage: 28 UNIT, BEFORE MEALS

REACTIONS (4)
  - Blood glucose increased [Unknown]
  - Product dose omission issue [Unknown]
  - Injection site bruising [Unknown]
  - Device issue [Unknown]

NARRATIVE: CASE EVENT DATE: 202004
